FAERS Safety Report 9556862 (Version 3)
Quarter: 2013Q4

REPORT INFORMATION
  Report Type: Spontaneous
  Country: US (occurrence: US)
  Receive Date: 20130926
  Receipt Date: 20131127
  Transmission Date: 20140711
  Serious: Yes (Hospitalization, Other)
  Sender: FDA-Public Use
  Company Number: US-SANOFI-AVENTIS-2013SA093742

PATIENT
  Age: 42 Year
  Sex: Female
  Weight: 89 kg

DRUGS (4)
  1. ENOXAPARIN SODIUM - WINTHROP [Suspect]
     Indication: THROMBOSIS
     Route: 065
     Dates: start: 201302
  2. IMIPRAMINE [Concomitant]
     Indication: DEPRESSION
     Dosage: DOSE - 50 X 3
     Route: 065
  3. PRAZOSIN [Concomitant]
     Route: 065
  4. ZETIA [Concomitant]
     Indication: BLOOD CHOLESTEROL
     Route: 065

REACTIONS (11)
  - Postoperative wound infection [Not Recovered/Not Resolved]
  - Post procedural drainage [Not Recovered/Not Resolved]
  - Pain [Not Recovered/Not Resolved]
  - Joint swelling [Not Recovered/Not Resolved]
  - Arthropathy [Not Recovered/Not Resolved]
  - Adverse event [Unknown]
  - Urinary tract infection [Unknown]
  - Menorrhagia [Recovered/Resolved]
  - Haematemesis [Not Recovered/Not Resolved]
  - Gastrointestinal haemorrhage [Unknown]
  - Constipation [Not Recovered/Not Resolved]
